FAERS Safety Report 13774192 (Version 1)
Quarter: 2017Q3

REPORT INFORMATION
  Report Type: Spontaneous
  Country: US (occurrence: US)
  Receive Date: 20170720
  Receipt Date: 20170720
  Transmission Date: 20171127
  Serious: No
  Sender: FDA-Public Use
  Company Number: US-RECKITT BENCKISER HEALTHCARE INT LIMITED-RB-88202-2016

PATIENT
  Age: 18 Year
  Sex: Female

DRUGS (2)
  1. MUCINEX [Suspect]
     Active Substance: GUAIFENESIN
     Indication: COUGH
     Dosage: 1 DF, SINGLE
     Route: 065
     Dates: start: 20160705
  2. MUCINEX [Suspect]
     Active Substance: GUAIFENESIN
     Indication: PRODUCTIVE COUGH
     Dosage: UNK, (TWO DOSES EVERY 12 HOURS)
     Route: 065
     Dates: start: 20160706, end: 20160707

REACTIONS (1)
  - Drug ineffective [Not Recovered/Not Resolved]
